FAERS Safety Report 25891996 (Version 1)
Quarter: 2025Q4

REPORT INFORMATION
  Report Type: Spontaneous
  Country: EU (occurrence: EU)
  Receive Date: 20251007
  Receipt Date: 20251007
  Transmission Date: 20260119
  Serious: Yes (Life-Threatening, Hospitalization, Other)
  Sender: NOVO NORDISK
  Company Number: None

PATIENT
  Age: 59 Year
  Sex: Female
  Weight: 104.6 kg

DRUGS (11)
  1. WEGOVY [Suspect]
     Active Substance: SEMAGLUTIDE
     Indication: Obesity
     Dosage: 1 DF, QW
     Route: 058
     Dates: start: 20250704, end: 20250730
  2. WEGOVY [Suspect]
     Active Substance: SEMAGLUTIDE
     Indication: Weight control
  3. LITHIUM CARBONATE [Concomitant]
     Active Substance: LITHIUM CARBONATE
     Dosage: 600 MG, QD (200 MG IN THE MORNING AND 400 MG IN THE EVENING)
  4. VENLAFAXINE HYDROCHLORIDE [Concomitant]
     Active Substance: VENLAFAXINE HYDROCHLORIDE
     Dosage: 225 MG, QD ((150+75MG) IN THE MORNING)
  5. CLOTHIAPINE [Concomitant]
     Active Substance: CLOTHIAPINE
     Dosage: 40 MG, QD (IN THE EVENING)
  6. GLUCOPHAGE [Concomitant]
     Active Substance: METFORMIN HYDROCHLORIDE
     Dosage: 850 MG, QD (THE MORNING)
  7. HYDROCHLOROTHIAZIDE\IRBESARTAN [Concomitant]
     Active Substance: HYDROCHLOROTHIAZIDE\IRBESARTAN
     Dosage: 150MG/ 12.5 MG IN THE MORNING
  8. LORAZEPAM [Concomitant]
     Active Substance: LORAZEPAM
     Dosage: 1 MG, QD (IN THE MORNING)
  9. PANTOPRAZOLE [Concomitant]
     Active Substance: PANTOPRAZOLE
     Dosage: 20 MG, QD (MORNING)
  10. SALAZOPYRINE [Concomitant]
     Active Substance: SULFASALAZINE
     Dosage: 500 MG (3 TABLETS IN THE MORNING AND 2 TABLETS IN THE EVENING)
  11. TRAZODONE [Concomitant]
     Active Substance: TRAZODONE HYDROCHLORIDE
     Dosage: 100 MG, QD (EVENING)

REACTIONS (2)
  - Diverticulitis intestinal perforated [Recovered/Resolved with Sequelae]
  - Peritonitis [Recovered/Resolved with Sequelae]

NARRATIVE: CASE EVENT DATE: 20250730
